FAERS Safety Report 23075937 (Version 2)
Quarter: 2023Q4

REPORT INFORMATION
  Report Type: Spontaneous
  Country: UZ (occurrence: UZ)
  Receive Date: 20231017
  Receipt Date: 20231106
  Transmission Date: 20240110
  Serious: Yes (Death)
  Sender: FDA-Public Use
  Company Number: UZ-JNJFOC-20231039481

PATIENT
  Age: 7 Decade
  Sex: Male
  Weight: 79 kg

DRUGS (6)
  1. SIRTURO [Suspect]
     Active Substance: BEDAQUILINE FUMARATE
     Indication: Tuberculosis
     Route: 048
     Dates: start: 20230429, end: 20230510
  2. SIRTURO [Suspect]
     Active Substance: BEDAQUILINE FUMARATE
     Route: 048
  3. LINEZOLID [Suspect]
     Active Substance: LINEZOLID
     Indication: Tuberculosis
     Route: 065
     Dates: start: 20230429, end: 20230510
  4. MOXIFLOXACIN [Suspect]
     Active Substance: MOXIFLOXACIN
     Indication: Tuberculosis
     Route: 065
     Dates: start: 20230429, end: 20230510
  5. PRETOMANID [Suspect]
     Active Substance: PRETOMANID
     Indication: Tuberculosis
     Dates: start: 20230429, end: 20230510
  6. PYRIDOXINE [Concomitant]
     Active Substance: PYRIDOXINE
     Indication: Prophylaxis
     Dosage: ONCE A DAY IM
     Route: 065
     Dates: start: 20230426, end: 20230510

REACTIONS (5)
  - Pulmonary tuberculosis [Fatal]
  - Hepatosplenomegaly [Fatal]
  - Anaemia [Fatal]
  - Pulmonary oedema [Fatal]
  - Peripheral venous disease [Fatal]
